FAERS Safety Report 5524270-1 (Version None)
Quarter: 2007Q4

REPORT INFORMATION
  Report Type: 
  Country: None (occurrence: None)
  Receive Date: 20071121
  Receipt Date: 20071029
  Transmission Date: 20080405
  Serious: Yes (Other)
  Sender: FDA-Public Use
  Company Number: US-PFIZER INC-2007091068

PATIENT
  Sex: Male
  Weight: 91.6 kg

DRUGS (17)
  1. ZOLOFT [Suspect]
  2. CARDIOVASCULAR SYSTEM DRUGS [Concomitant]
  3. ACIPHEX [Concomitant]
     Dosage: DAILY DOSE:20MG
  4. MAGNESIUM SULFATE [Concomitant]
  5. MIDODRINE [Concomitant]
  6. WELLBUTRIN XL [Concomitant]
     Dosage: DAILY DOSE:300MG
  7. LORAZEPAM [Concomitant]
     Dosage: DAILY DOSE:1MG
  8. ZETIA [Concomitant]
     Dosage: DAILY DOSE:10MG
  9. WARFARIN SODIUM [Concomitant]
  10. ALL OTHER THERAPEUTIC PRODUCTS [Concomitant]
  11. TOPROL-XL [Concomitant]
     Dosage: DAILY DOSE:50MG
  12. KLOR-CON [Concomitant]
  13. INSULIN [Concomitant]
  14. VITAMIN CAP [Concomitant]
  15. CALCIUM [Concomitant]
  16. COSOPT [Concomitant]
  17. ALPHAGAN [Concomitant]

REACTIONS (8)
  - BLOOD PRESSURE DECREASED [None]
  - DIZZINESS [None]
  - FALL [None]
  - GAIT DISTURBANCE [None]
  - INNER EAR DISORDER [None]
  - MULTIPLE SYSTEM ATROPHY [None]
  - PARAESTHESIA [None]
  - TREMOR [None]
